FAERS Safety Report 19834521 (Version 2)
Quarter: 2021Q3

REPORT INFORMATION
  Report Type: Report from Study
  Country: IT (occurrence: IT)
  Receive Date: 20210915
  Receipt Date: 20210917
  Transmission Date: 20211014
  Serious: Yes (Other)
  Sender: FDA-Public Use
  Company Number: IT-ASTRAZENECA-2021A719639

PATIENT
  Age: 3461 Week
  Sex: Female

DRUGS (9)
  1. CLENIL [Concomitant]
     Active Substance: BECLOMETHASONE DIPROPIONATE
  2. LASIX [Concomitant]
     Active Substance: FUROSEMIDE
  3. DIBASE [Concomitant]
     Active Substance: CHOLECALCIFEROL
  4. EURTIROX [Concomitant]
  5. GARDENALE [Concomitant]
     Active Substance: PHENOBARBITAL
  6. FASENRA [Suspect]
     Active Substance: BENRALIZUMAB
     Indication: ASTHMA
     Route: 058
     Dates: start: 20190207
  7. DELTACORTENE [Concomitant]
     Active Substance: PREDNISONE
  8. RIVOTRIL [Concomitant]
     Active Substance: CLONAZEPAM
  9. FOSTER [Concomitant]
     Active Substance: BECLOMETHASONE\FORMOTEROL

REACTIONS (3)
  - Radius fracture [Recovering/Resolving]
  - Fall [Unknown]
  - Epilepsy [Recovered/Resolved]

NARRATIVE: CASE EVENT DATE: 20210703
